FAERS Safety Report 16894962 (Version 1)
Quarter: 2019Q4

REPORT INFORMATION
  Report Type: Spontaneous
  Country: UM (occurrence: UM)
  Receive Date: 20190814
  Receipt Date: 20190814
  Transmission Date: 20200122
  Serious: Yes (Hospitalization)
  Sender: FDA-Public Use
  Company Number: None

PATIENT
  Age: 56 Year
  Sex: Female

DRUGS (10)
  1. AMLODIPINE [Concomitant]
     Active Substance: AMLODIPINE BESYLATE
  2. IMATINIB 400MG [Suspect]
     Active Substance: IMATINIB
     Indication: CHRONIC MYELOID LEUKAEMIA (IN REMISSION)
     Route: 048
  3. NO DRUG NAME [Concomitant]
  4. SPIRIVA [Concomitant]
     Active Substance: TIOTROPIUM BROMIDE MONOHYDRATE
  5. PREDNISONE. [Concomitant]
     Active Substance: PREDNISONE
  6. LYRICA [Concomitant]
     Active Substance: PREGABALIN
  7. FERROUS SULFATE. [Concomitant]
     Active Substance: FERROUS SULFATE
  8. SYMBICORT [Concomitant]
     Active Substance: BUDESONIDE\FORMOTEROL FUMARATE DIHYDRATE
  9. IMATINIB 400MG [Suspect]
     Active Substance: IMATINIB
     Indication: PHILADELPHIA CHROMOSOME POSITIVE
     Route: 048
  10. ALBUTEROL. [Concomitant]
     Active Substance: ALBUTEROL

REACTIONS (1)
  - Chronic obstructive pulmonary disease [None]

NARRATIVE: CASE EVENT DATE: 20140814
